FAERS Safety Report 14841218 (Version 15)
Quarter: 2018Q3

REPORT INFORMATION
  Report Type: Spontaneous
  Country: DE (occurrence: DE)
  Receive Date: 20180503
  Receipt Date: 20180806
  Transmission Date: 20181010
  Serious: Yes (Death, Life-Threatening, Hospitalization, Other)
  Sender: FDA-Public Use
  Company Number: DE-CONCORDIA PHARMACEUTICALS INC.-E2B_00011517

PATIENT
  Age: 73 Year
  Sex: Female
  Weight: 69 kg

DRUGS (55)
  1. DIGOXIN. [Suspect]
     Active Substance: DIGOXIN
     Dosage: 0.3 MG, 1D
     Route: 048
     Dates: start: 20010703, end: 20010714
  2. METOCLOPRAMIDE HYDROCHLORIDE. [Suspect]
     Active Substance: METOCLOPRAMIDE HYDROCHLORIDE
     Indication: NAUSEA
     Dosage: 7 MG, Q9D
     Route: 048
     Dates: start: 20010704, end: 20010712
  3. ZAROXOLYN [Suspect]
     Active Substance: METOLAZONE
     Indication: HYPERTENSION
     Dosage: 2 MG, QD
     Route: 048
     Dates: start: 20010712, end: 20010713
  4. LASIX [Suspect]
     Active Substance: FUROSEMIDE
     Indication: HYPERTENSION
     Dosage: 120 MG,QD
     Route: 042
     Dates: start: 20010703, end: 20010714
  5. PARACETAMOL [Suspect]
     Active Substance: ACETAMINOPHEN
     Dosage: 500 MG, UNK
     Route: 048
     Dates: start: 20010711, end: 20010711
  6. DECORTIN [Suspect]
     Active Substance: PREDNISONE
     Indication: RESTLESSNESS
     Dosage: 50 MG, DAILY
     Route: 042
     Dates: start: 20010703, end: 20010703
  7. SORTIS [Suspect]
     Active Substance: ATORVASTATIN
     Indication: HYPERLIPIDAEMIA
     Dosage: 20 MG, EVERY 18 DAYS
     Route: 048
     Dates: start: 20010616, end: 20010703
  8. CAPTOPRIL. [Concomitant]
     Active Substance: CAPTOPRIL
     Indication: CORONARY ARTERY DISEASE
     Dosage: UNK UNK, EVERY 29 DAYS
     Route: 048
     Dates: start: 20010616, end: 20010714
  9. DIGOXIN. [Suspect]
     Active Substance: DIGOXIN
     Indication: CORONARY ARTERY DISEASE
     Dosage: 0.2 MG, 1D
     Route: 048
     Dates: start: 20010703, end: 20010714
  10. ASPIRIN. [Suspect]
     Active Substance: ASPIRIN
     Indication: CORONARY ARTERY DISEASE
     Dosage: 100 MG, UNK
     Route: 048
     Dates: start: 20010616, end: 20010714
  11. CIPROFLOXACIN HYDROCHLORIDE. [Suspect]
     Active Substance: CIPROFLOXACIN HYDROCHLORIDE
     Dosage: 250 MG, BID
     Route: 048
     Dates: start: 20010710, end: 20010711
  12. ROCEPHIN [Suspect]
     Active Substance: CEFTRIAXONE SODIUM
     Indication: PYREXIA
     Dosage: 1 G, BID
     Route: 042
     Dates: start: 20010629, end: 20010703
  13. CAPTOPRIL. [Suspect]
     Active Substance: CAPTOPRIL
     Indication: CORONARY ARTERY DISEASE
     Dosage: UNK UNK, EVERY 29 DAYS
     Route: 048
     Dates: start: 20010616, end: 20010714
  14. POTASSIUM [Concomitant]
     Active Substance: POTASSIUM
     Indication: ELECTROLYTE IMBALANCE
  15. EUNERPAN [Suspect]
     Active Substance: MELPERONE HYDROCHLORIDE
     Indication: RESTLESSNESS
     Dosage: 16 ML, 1D, 105 MG, (DOSE RANGED FROM 80?105 MG DAILY
     Route: 048
     Dates: start: 20010706, end: 20010712
  16. RAMIPRIL. [Suspect]
     Active Substance: RAMIPRIL
     Indication: CORONARY ARTERY DISEASE
     Dosage: 10 MG, EVERY 29 DAY
     Route: 048
     Dates: start: 20010616, end: 20010714
  17. METFORMIN HYDROCHLORIDE. [Suspect]
     Active Substance: METFORMIN HYDROCHLORIDE
     Indication: DIABETES MELLITUS
     Dosage: 250 MG, EVERY 29 DAYS
     Route: 048
     Dates: start: 20010616, end: 20010714
  18. PANTOZOL [Suspect]
     Active Substance: PANTOPRAZOLE SODIUM
     Indication: PROPHYLAXIS
     Dosage: 40 MG,QD
     Route: 048
     Dates: start: 20010616, end: 20010714
  19. PANTOZOL [Suspect]
     Active Substance: PANTOPRAZOLE SODIUM
     Dosage: 80 MG, QD
     Route: 048
     Dates: start: 20010116
  20. YEAST DRIED [Suspect]
     Active Substance: YEAST
     Indication: DIARRHOEA
     Dosage: 300 MG
     Route: 048
     Dates: start: 20010711, end: 20010714
  21. GLIMEPIRIDE. [Concomitant]
     Active Substance: GLIMEPIRIDE
     Indication: DIABETES MELLITUS
     Dosage: 3 MG, DAILY
     Route: 048
     Dates: start: 20010703
  22. PREDNISOLONE. [Suspect]
     Active Substance: PREDNISOLONE
     Indication: DYSPNOEA
     Dosage: 50 MG, QD
     Route: 042
     Dates: start: 20010703, end: 20010703
  23. CIPROFLOXACIN HYDROCHLORIDE. [Suspect]
     Active Substance: CIPROFLOXACIN HYDROCHLORIDE
     Indication: CHOLECYSTITIS
     Dosage: 500 MG, BID
     Route: 048
     Dates: start: 20010620, end: 20010628
  24. MOLSIDOMINE [Suspect]
     Active Substance: MOLSIDOMINE
     Indication: CORONARY ARTERY DISEASE
     Dosage: 250 MG, EVERY 29 DAYS
     Route: 048
     Dates: start: 20010116, end: 20010714
  25. FRAGMIN [Suspect]
     Active Substance: DALTEPARIN SODIUM
     Indication: THROMBOSIS PROPHYLAXIS
     Dosage: 2500 IU, Q12D
     Route: 058
     Dates: start: 20010703, end: 20010714
  26. AMPHOTERICIN B. [Suspect]
     Active Substance: AMPHOTERICIN B
     Indication: ANTIFUNGAL PROPHYLAXIS
     Dosage: 200 MG, EVERY 12 DAYS
     Route: 048
     Dates: start: 20010703, end: 20010714
  27. TRANXENE [Suspect]
     Active Substance: CLORAZEPATE DIPOTASSIUM
     Indication: RESTLESSNESS
     Dosage: 10 MG, 1D
     Dates: start: 20010710, end: 20010714
  28. MOLSIDOMINE [Suspect]
     Active Substance: MOLSIDOMINE
     Indication: DIABETES MELLITUS
     Dosage: 8 MG, QD
     Route: 048
     Dates: start: 20010703, end: 20010714
  29. MOLSIDOMINE [Suspect]
     Active Substance: MOLSIDOMINE
     Indication: CORONARY ARTERY DISEASE
     Dosage: 250 MG, EVERY 29 DAYS
     Route: 048
     Dates: start: 20010116, end: 20010714
  30. MOLSIDOMINE [Suspect]
     Active Substance: MOLSIDOMINE
     Indication: DIABETES MELLITUS
  31. PLAVIX [Suspect]
     Active Substance: CLOPIDOGREL BISULFATE
     Indication: CORONARY ARTERY DISEASE
     Dosage: 75 MG, QD
     Route: 048
     Dates: start: 20010704, end: 20010714
  32. TRANXILIUM [Suspect]
     Active Substance: CLORAZEPATE DIPOTASSIUM
     Indication: RESTLESSNESS
     Dosage: 10 MG, DAILY
     Route: 048
     Dates: start: 20010710, end: 20010714
  33. DECORTIN [Suspect]
     Active Substance: PREDNISONE
     Indication: DYSPNOEA
  34. KALIUM [Suspect]
     Active Substance: POTASSIUM CHLORIDE
     Indication: ELECTROLYTE IMBALANCE
     Dosage: 1500 MG, QID
     Route: 048
     Dates: start: 20010703, end: 20010714
  35. ISOSORBIDE MONONITRATE. [Suspect]
     Active Substance: ISOSORBIDE MONONITRATE
     Indication: CORONARY ARTERY DISEASE
     Dosage: UNK
     Route: 048
     Dates: start: 20010703, end: 20010714
  36. MOLSIDOMINE [Suspect]
     Active Substance: MOLSIDOMINE
     Indication: CORONARY ARTERY DISEASE
     Dosage: 16 MG, Q12D
     Route: 048
  37. MOLSIDOMINE [Suspect]
     Active Substance: MOLSIDOMINE
  38. PERENTEROL [Suspect]
     Active Substance: SACCHAROMYCES CEREVISIAE
     Indication: DIARRHOEA
     Dosage: 300 MG, (100 MG TO 300MG)
     Route: 048
     Dates: start: 20010711, end: 20010714
  39. LANTUS [Suspect]
     Active Substance: INSULIN GLARGINE
     Indication: DIABETES MELLITUS
     Dosage: 16 IU, UNK
     Route: 058
     Dates: start: 20010616, end: 20010629
  40. AMARYL [Suspect]
     Active Substance: GLIMEPIRIDE
     Indication: DIABETES MELLITUS
     Dosage: 3 MG, EVERY 18 DAYS
     Route: 048
     Dates: start: 20010616, end: 20010703
  41. HALDOL [HALOPERIDOL] [Concomitant]
     Indication: RESTLESSNESS
     Dosage: 3 GTT, DAILY
     Route: 048
     Dates: start: 20010713, end: 20010714
  42. LEXOTANIL [Concomitant]
     Active Substance: BROMAZEPAM
     Dosage: 2 MG, UNK
     Route: 048
     Dates: start: 20010713, end: 20010714
  43. POTASSIUM [Concomitant]
     Active Substance: POTASSIUM
     Indication: PRODUCT USED FOR UNKNOWN INDICATION
     Dosage: 1500 MG, Q12D
     Route: 048
     Dates: start: 20010703, end: 20010714
  44. BISOPROLOL FUMARATE. [Concomitant]
     Active Substance: BISOPROLOL FUMARATE
     Indication: CORONARY ARTERY DISEASE
     Dosage: 5 MG, DAILY
     Route: 048
     Dates: start: 20010714, end: 20010714
  45. HALOPERIDOL. [Concomitant]
     Active Substance: HALOPERIDOL
     Indication: RESTLESSNESS
     Route: 048
     Dates: start: 20010713, end: 20010714
  46. DIGOXIN. [Suspect]
     Active Substance: DIGOXIN
     Dosage: 1 DF, DAILY
     Route: 048
     Dates: start: 20010703
  47. DIAZEPAM. [Suspect]
     Active Substance: DIAZEPAM
     Indication: RESTLESSNESS
     Dosage: 5 MG, UNK
     Route: 048
     Dates: start: 20010616, end: 20010703
  48. NORVASC [Suspect]
     Active Substance: AMLODIPINE BESYLATE
     Indication: CORONARY ARTERY DISEASE
     Dosage: 5 MG, BID
     Route: 048
     Dates: start: 20010703, end: 20010714
  49. CARBIMAZOLE [Suspect]
     Active Substance: CARBIMAZOLE
     Indication: HYPERTHYROIDISM
     Dosage: 30 MG,QD
     Route: 048
     Dates: start: 20010621, end: 20010714
  50. PARACETAMOL [Suspect]
     Active Substance: ACETAMINOPHEN
     Indication: PAIN
     Dosage: 500 MG, UNK
     Route: 048
     Dates: start: 20010711, end: 20010711
  51. CONCOR [Suspect]
     Active Substance: BISOPROLOL FUMARATE
     Indication: CORONARY ARTERY DISEASE
     Dosage: 8 MG, EVERY 29 DAYS
     Route: 048
     Dates: start: 20010616, end: 20010714
  52. METFORMIN HYDROCHLORIDE. [Suspect]
     Active Substance: METFORMIN HYDROCHLORIDE
     Indication: CORONARY ARTERY DISEASE
     Dosage: 7 MG, UNK
     Route: 048
  53. IRENAT [Suspect]
     Active Substance: SODIUM PERCHLORATE
     Indication: HYPERTHYROIDISM
     Dosage: 688 MG, (TOTAL DAILY DOSE RANGED FROM 1376.8 MG TO 2065.2 MG)
     Route: 048
     Dates: start: 20010618, end: 20010714
  54. LEXOTANIL [Concomitant]
     Active Substance: BROMAZEPAM
     Indication: RESTLESSNESS
     Dosage: 1.5 MG, BID
     Route: 048
     Dates: start: 20010713, end: 20010714
  55. POTASSIUM CHLORIDE. [Concomitant]
     Active Substance: POTASSIUM CHLORIDE
     Indication: ELECTROLYTE IMBALANCE
     Dosage: 1 DF, UNK
     Route: 048
     Dates: start: 20010703, end: 20010714

REACTIONS (14)
  - Condition aggravated [Fatal]
  - Hyperthyroidism [Fatal]
  - Cholelithiasis [Fatal]
  - Respiratory disorder [Fatal]
  - Electrolyte imbalance [Fatal]
  - Diarrhoea [Fatal]
  - Toxic epidermal necrolysis [Fatal]
  - Dermatitis exfoliative [Unknown]
  - Cholecystitis [Fatal]
  - Blister [Unknown]
  - Nausea [Fatal]
  - Restlessness [Fatal]
  - Erythema [Unknown]
  - Multiple organ dysfunction syndrome [Fatal]

NARRATIVE: CASE EVENT DATE: 20010704
